FAERS Safety Report 8142273-8 (Version None)
Quarter: 2012Q1

REPORT INFORMATION
  Report Type: 
  Country: None (occurrence: None)
  Receive Date: 20120216
  Receipt Date: 20120214
  Transmission Date: 20120608
  Serious: Yes (Other)
  Sender: FDA-Public Use
  Company Number: US-PFIZER INC-2012040545

PATIENT
  Age: 51 Year

DRUGS (2)
  1. CHANTIX [Suspect]
     Dosage: UNK
     Dates: start: 20090401
  2. CHANTIX [Suspect]
     Dosage: UNK
     Dates: start: 20070901

REACTIONS (3)
  - DYSPNOEA [None]
  - STRESS [None]
  - NIGHTMARE [None]
